FAERS Safety Report 19716297 (Version 2)
Quarter: 2021Q3

REPORT INFORMATION
  Report Type: Spontaneous
  Country: DE (occurrence: DE)
  Receive Date: 20210819
  Receipt Date: 20210907
  Transmission Date: 20211014
  Serious: Yes (Hospitalization, Other)
  Sender: FDA-Public Use
  Company Number: DE-BEH-2021134793

PATIENT
  Age: 2 Year
  Sex: Female

DRUGS (2)
  1. HAEMATE P [Suspect]
     Active Substance: ANTIHEMOPHILIC FACTOR HUMAN
     Indication: VON WILLEBRAND^S DISEASE
     Dosage: 200 INTERNATIONAL UNIT
     Route: 065
     Dates: start: 20210730, end: 20210730
  2. HAEMATE P [Suspect]
     Active Substance: ANTIHEMOPHILIC FACTOR HUMAN
     Indication: VON WILLEBRAND^S DISEASE
     Dosage: 200 INTERNATIONAL UNIT
     Route: 065
     Dates: start: 20210730, end: 20210730

REACTIONS (5)
  - Palpitations [Unknown]
  - Von Willebrand^s factor antibody positive [Unknown]
  - Anti factor VIII antibody positive [Unknown]
  - Cough [Unknown]
  - Pallor [Unknown]

NARRATIVE: CASE EVENT DATE: 20210730
